FAERS Safety Report 4612356-5 (Version None)
Quarter: 2005Q1

REPORT INFORMATION
  Report Type: 
  Country: None (occurrence: None)
  Receive Date: 20050308
  Receipt Date: 20041118
  Transmission Date: 20050727
  Serious: Yes (Other)
  Sender: FDA-Public Use
  Company Number: 2004UW23747

PATIENT
  Age: 67 Year
  Sex: Female

DRUGS (6)
  1. CRESTOR [Suspect]
     Dosage: 20 MG PO
     Route: 048
  2. ASPIRIN [Concomitant]
  3. BENICAR [Concomitant]
  4. OXAPROZIN [Concomitant]
  5. NIASPAN [Concomitant]
  6. TRICOR [Concomitant]

REACTIONS (1)
  - CARDIOMYOPATHY [None]
